FAERS Safety Report 22232179 (Version 2)
Quarter: 2023Q2

REPORT INFORMATION
  Report Type: Spontaneous
  Country: JP (occurrence: JP)
  Receive Date: 20230420
  Receipt Date: 20230605
  Transmission Date: 20230721
  Serious: Yes (Hospitalization)
  Sender: FDA-Public Use
  Company Number: JP-JNJFOC-20230436333

PATIENT
  Sex: Female

DRUGS (5)
  1. TREMFYA [Suspect]
     Active Substance: GUSELKUMAB
     Indication: Pustular psoriasis
     Dosage: DOSE UNKNOWN?INJECTION
     Route: 058
  2. TREMFYA [Suspect]
     Active Substance: GUSELKUMAB
  3. TREMFYA [Suspect]
     Active Substance: GUSELKUMAB
  4. ETRETINATE [Concomitant]
     Active Substance: ETRETINATE
     Dosage: DOSE UNKNOWN
     Route: 048
  5. CLOBETASOL [Concomitant]
     Active Substance: CLOBETASOL
     Dosage: DOSE UNKNOWN
     Route: 061

REACTIONS (1)
  - Fracture [Unknown]
